FAERS Safety Report 19802373 (Version 5)
Quarter: 2021Q4

REPORT INFORMATION
  Report Type: Spontaneous
  Country: CA (occurrence: CA)
  Receive Date: 20210908
  Receipt Date: 20211202
  Transmission Date: 20220303
  Serious: Yes (Death, Other)
  Sender: FDA-Public Use
  Company Number: CA-JNJFOC-20210858698

PATIENT
  Age: 66 Year
  Sex: Female

DRUGS (6)
  1. UPTRAVI [Suspect]
     Active Substance: SELEXIPAG
     Indication: Product used for unknown indication
     Dosage: IN THE MORNING
     Route: 048
     Dates: start: 20210802
  2. UPTRAVI [Suspect]
     Active Substance: SELEXIPAG
     Dosage: IN THE EVENING
     Route: 065
     Dates: start: 20210802
  3. UPTRAVI [Suspect]
     Active Substance: SELEXIPAG
     Route: 065
     Dates: start: 20210805
  4. AMBRISENTAN [Suspect]
     Active Substance: AMBRISENTAN
     Indication: Pulmonary arterial hypertension
     Route: 048
     Dates: start: 20120830
  5. AMBRISENTAN [Suspect]
     Active Substance: AMBRISENTAN
     Dates: start: 20210806
  6. ADCIRCA [Suspect]
     Active Substance: TADALAFIL
     Indication: Pulmonary arterial hypertension
     Route: 065
     Dates: start: 20140715

REACTIONS (4)
  - Cardiac arrest [Fatal]
  - Vomiting [Fatal]
  - Headache [Fatal]
  - Myasthenia gravis [Unknown]

NARRATIVE: CASE EVENT DATE: 20210801
